FAERS Safety Report 8589263-9 (Version None)
Quarter: 2012Q3

REPORT INFORMATION
  Report Type: 
  Country: None (occurrence: None)
  Receive Date: 20120813
  Receipt Date: 20120731
  Transmission Date: 20120928
  Serious: Yes (Death, Hospitalization)
  Sender: FDA-Public Use
  Company Number: IT-PFIZER INC-2012193156

PATIENT
  Age: 51 Year
  Sex: Male

DRUGS (7)
  1. BROMAZEPAM [Suspect]
     Dosage: UNK
     Route: 065
  2. CITALOPRAM [Suspect]
     Dosage: UNK
     Route: 065
  3. IBUPROFEN [Suspect]
     Dosage: UNK
     Route: 065
  4. MELOXICAM [Suspect]
     Dosage: UNK
     Route: 065
  5. RISPERIDONE [Suspect]
     Dosage: UNK
     Route: 065
  6. CELECOXIB [Suspect]
     Route: 065
  7. KETOROLAC [Suspect]
     Dosage: UNK
     Route: 065

REACTIONS (3)
  - MULTIPLE DRUG OVERDOSE [None]
  - TOXICITY TO VARIOUS AGENTS [None]
  - SUICIDE ATTEMPT [None]
